FAERS Safety Report 6261798-3 (Version None)
Quarter: 2009Q3

REPORT INFORMATION
  Report Type: 
  Country: None (occurrence: None)
  Receive Date: 20090709
  Receipt Date: 20090706
  Transmission Date: 20100115
  Serious: Yes (Hospitalization, Other)
  Sender: FDA-Public Use
  Company Number: US-ASTRAZENECA-2008UW27629

PATIENT
  Age: 10782 Day
  Sex: Female
  Weight: 149.7 kg

DRUGS (10)
  1. SEROQUEL [Suspect]
     Indication: DEPRESSION
     Dosage: 25 TO 100 MG
     Route: 048
     Dates: start: 20030101, end: 20041228
  2. SEROQUEL [Suspect]
     Indication: BORDERLINE PERSONALITY DISORDER
     Dosage: 25 TO 100 MG
     Route: 048
     Dates: start: 20030101, end: 20041228
  3. CLOZARIL [Concomitant]
     Dosage: 25 TO 150 MG
     Dates: start: 20041026, end: 20081117
  4. RISPERDAL [Concomitant]
     Dosage: 0.5 MG TO 1 MG
     Dates: start: 20030903, end: 20040219
  5. ZYPREXA [Concomitant]
     Dates: start: 20040923
  6. EFFEXOR [Concomitant]
     Dosage: 75 MG TO 225 MG
     Dates: start: 20030801
  7. TRAZODONE HCL [Concomitant]
     Dosage: 50 TO 100 MG
     Dates: start: 20031121, end: 20051204
  8. WELLBUTRIN [Concomitant]
     Dates: start: 20040219, end: 20041011
  9. PROZAC [Concomitant]
     Dates: start: 20040910, end: 20060215
  10. LEXAPRO [Concomitant]
     Dates: start: 20030801, end: 20030818

REACTIONS (5)
  - ADVERSE DRUG REACTION [None]
  - CARDIAC DISORDER [None]
  - DEPRESSION [None]
  - DIABETES MELLITUS [None]
  - GASTROINTESTINAL DISORDER [None]
